FAERS Safety Report 17377055 (Version 2)
Quarter: 2020Q1

REPORT INFORMATION
  Report Type: Spontaneous
  Country: US (occurrence: US)
  Receive Date: 20200206
  Receipt Date: 20200319
  Transmission Date: 20200409
  Serious: No
  Sender: FDA-Public Use
  Company Number: US-PFIZER INC-2020041576

PATIENT
  Age: 57 Year
  Sex: Male
  Weight: 104.33 kg

DRUGS (1)
  1. ADVIL LIQUI-GELS [Suspect]
     Active Substance: IBUPROFEN
     Indication: TOOTHACHE
     Dosage: 1 DF, AS NEEDED
     Route: 048

REACTIONS (8)
  - Product quality issue [Unknown]
  - Hypertension [Unknown]
  - Product physical issue [Unknown]
  - Oral discomfort [Not Recovered/Not Resolved]
  - Poor quality product administered [Unknown]
  - Accidental exposure to product [Unknown]
  - Paraesthesia oral [Unknown]
  - Tongue discomfort [Recovering/Resolving]

NARRATIVE: CASE EVENT DATE: 20200128
